FAERS Safety Report 14937545 (Version 1)
Quarter: 2018Q2

REPORT INFORMATION
  Report Type: Report from Study
  Country: ZA (occurrence: ZA)
  Receive Date: 20180525
  Receipt Date: 20180525
  Transmission Date: 20180711
  Serious: Yes (Death, Congenital Anomaly, Other)
  Sender: FDA-Public Use
  Company Number: ZA-HETERO-HET2018ZA00455

PATIENT
  Age: 11 Day
  Sex: Female
  Weight: 2.62 kg

DRUGS (2)
  1. ISENTRESS [Suspect]
     Active Substance: RALTEGRAVIR POTASSIUM
     Indication: HIV INFECTION
     Dosage: 800 MG, QD
     Route: 064
     Dates: start: 20170906, end: 20180115
  2. EMTRICITABINE + TENOFOVIR [Suspect]
     Active Substance: EMTRICITABINE\TENOFOVIR
     Indication: HIV INFECTION
     Dosage: 1 DOSAGE FORM (TAB/CAPS)
     Route: 064
     Dates: start: 20170906, end: 20180115

REACTIONS (5)
  - Foetal exposure during pregnancy [Unknown]
  - Cleft lip [Unknown]
  - Hepatotoxicity [Recovered/Resolved]
  - Death [Fatal]
  - Exposure via breast milk [Unknown]

NARRATIVE: CASE EVENT DATE: 20180126
